FAERS Safety Report 19929123 (Version 1)
Quarter: 2021Q4

REPORT INFORMATION
  Report Type: Spontaneous
  Country: US (occurrence: US)
  Receive Date: 20211007
  Receipt Date: 20211007
  Transmission Date: 20220303
  Serious: No
  Sender: FDA-Public Use
  Company Number: US-BEH-2021136644

PATIENT
  Sex: Female

DRUGS (1)
  1. HIZENTRA [Suspect]
     Active Substance: HUMAN IMMUNOGLOBULIN G
     Indication: Stiff person syndrome
     Dosage: 20 GRAM, QW
     Route: 058
     Dates: start: 202106

REACTIONS (8)
  - Drug effective for unapproved indication [Unknown]
  - Muscle disorder [Unknown]
  - Restless legs syndrome [Unknown]
  - Musculoskeletal stiffness [Unknown]
  - Muscle tightness [Unknown]
  - Dyspnoea [Unknown]
  - No adverse event [Unknown]
  - Off label use [Unknown]
